FAERS Safety Report 10050643 (Version 1)
Quarter: 2014Q2

REPORT INFORMATION
  Report Type: Spontaneous
  Country: US (occurrence: US)
  Receive Date: 20140401
  Receipt Date: 20140401
  Transmission Date: 20141212
  Serious: No
  Sender: FDA-Public Use
  Company Number: US-ASTRAZENECA-2013SE56552

PATIENT
  Age: 48 Year
  Sex: Female
  Weight: 79.4 kg

DRUGS (9)
  1. NEXIUM [Suspect]
     Indication: GASTROOESOPHAGEAL REFLUX DISEASE
     Route: 048
     Dates: start: 2008, end: 2008
  2. NEXIUM [Suspect]
     Indication: GASTROOESOPHAGEAL REFLUX DISEASE
     Route: 048
     Dates: start: 2010, end: 2010
  3. NEXIUM [Suspect]
     Indication: GASTROOESOPHAGEAL REFLUX DISEASE
     Route: 048
     Dates: start: 20130717
  4. PRILOSEC OTC [Suspect]
     Indication: GASTROOESOPHAGEAL REFLUX DISEASE
     Route: 048
     Dates: start: 1995, end: 2013
  5. SUSTENEX [Concomitant]
     Indication: PROBIOTIC THERAPY
     Dosage: DAILY
     Route: 048
     Dates: start: 2012
  6. SINGULAIR [Concomitant]
     Indication: MULTIPLE ALLERGIES
     Route: 048
     Dates: start: 201212
  7. DEXILANT [Concomitant]
     Indication: GASTROOESOPHAGEAL REFLUX DISEASE
     Route: 048
     Dates: start: 2010, end: 2012
  8. DEXILANT [Concomitant]
     Indication: OESOPHAGITIS
     Route: 048
     Dates: start: 2010, end: 2012
  9. OVER THE COUNTER MEDICATIONS [Concomitant]

REACTIONS (5)
  - Oesophageal spasm [Unknown]
  - Burning sensation [Unknown]
  - Chest discomfort [Unknown]
  - Drug ineffective [Unknown]
  - Drug dose omission [Unknown]
